FAERS Safety Report 6690306-8 (Version None)
Quarter: 2010Q2

REPORT INFORMATION
  Report Type: 
  Country: None (occurrence: None)
  Receive Date: 20100421
  Receipt Date: 20100412
  Transmission Date: 20101027
  Serious: Yes (Hospitalization, Other)
  Sender: FDA-Public Use
  Company Number: PHHY2010US22576

PATIENT
  Age: 49 Year
  Sex: Female

DRUGS (2)
  1. ZOMETA [Suspect]
     Indication: BREAST CANCER
     Dosage: 4 MG, QMO
     Route: 042
     Dates: start: 20000101
  2. AREDIA [Suspect]
     Dosage: UNK
     Dates: start: 20000101, end: 20020101

REACTIONS (3)
  - CHRONIC MYELOID LEUKAEMIA [None]
  - FRACTURE [None]
  - INTERNAL FIXATION OF FRACTURE [None]
